FAERS Safety Report 6059617-3 (Version None)
Quarter: 2009Q1

REPORT INFORMATION
  Report Type: 
  Country: None (occurrence: None)
  Receive Date: 20090130
  Receipt Date: 20090121
  Transmission Date: 20090719
  Serious: Yes (Other)
  Sender: FDA-Public Use
  Company Number: JP-ROCHE-610910

PATIENT
  Age: 7 Year
  Sex: Female
  Weight: 17.1 kg

DRUGS (9)
  1. CELLCEPT [Suspect]
     Indication: PROPHYLAXIS AGAINST TRANSPLANT REJECTION
     Route: 048
     Dates: start: 20060101, end: 20060101
  2. CELLCEPT [Suspect]
     Route: 048
     Dates: start: 20060101
  3. TACROLIMUS HYDRATE [Concomitant]
     Dosage: FORM: ORAL FORMULATION (NOS)
     Route: 048
     Dates: start: 20060101, end: 20061101
  4. TACROLIMUS HYDRATE [Concomitant]
     Route: 048
     Dates: start: 20060101, end: 20060101
  5. PROGRAF [Concomitant]
     Dosage: ROUTE: INTRAVENOUS (NOS)
     Route: 042
     Dates: start: 20060101, end: 20060101
  6. PREDNISOLONE [Concomitant]
     Dosage: FORM: ORAL FORMULATION (NOT OTHERWISE SPECIFIED)
     Route: 048
     Dates: start: 20060101
  7. SIMULECT [Concomitant]
     Dosage: ROUTE : INJECTABLE (NOS)
     Route: 050
     Dates: start: 20060101, end: 20060101
  8. SANDIMMUNE [Concomitant]
     Dosage: ROUTE: INTRAVENOUS (NOS)
     Route: 050
     Dates: start: 20060101, end: 20060101
  9. CYCLOSPORINE [Concomitant]
     Dosage: FORM: ORAL FORMULATION (NOS)
     Route: 048
     Dates: start: 20060101

REACTIONS (1)
  - FOCAL SEGMENTAL GLOMERULOSCLEROSIS [None]
